FAERS Safety Report 7675556-6 (Version None)
Quarter: 2011Q3

REPORT INFORMATION
  Report Type: 
  Country: None (occurrence: None)
  Receive Date: 20110810
  Receipt Date: 20110801
  Transmission Date: 20111222
  Serious: Yes (Hospitalization, Other)
  Sender: FDA-Public Use
  Company Number: BR-MEDIMMUNE-MEDI-0011509

PATIENT
  Sex: Male
  Weight: 7.55 kg

DRUGS (3)
  1. SYNAGIS [Suspect]
     Indication: CARDIAC DISORDER
     Route: 030
     Dates: end: 20100619
  2. CAPTOPRIL [Concomitant]
     Indication: CARDIAC DISORDER
     Dosage: 12.5 MG, 6 ML EVERY 8 HOURS
     Route: 048
     Dates: start: 20091029
  3. FUROSEMIDE [Concomitant]
     Indication: CARDIAC DISORDER
     Dosage: 40 MG, 2.5 ML EVERY 8 HOURS
     Route: 048
     Dates: start: 20091029

REACTIONS (9)
  - INFLUENZA [None]
  - VARICELLA [None]
  - PYREXIA [None]
  - DIARRHOEA [None]
  - HYPOPHAGIA [None]
  - VIRAL INFECTION [None]
  - MASTOIDITIS [None]
  - MUSCULOSKELETAL STIFFNESS [None]
  - VOMITING [None]
